FAERS Safety Report 20616979 (Version 1)
Quarter: 2022Q1

REPORT INFORMATION
  Report Type: Spontaneous
  Country: US (occurrence: None)
  Receive Date: 20220319
  Receipt Date: 20220319
  Transmission Date: 20220423
  Serious: Yes (Other)
  Sender: FDA-Public Use
  Company Number: None

PATIENT
  Age: 40 Year
  Sex: Female
  Weight: 58.5 kg

DRUGS (2)
  1. AMPHETAMINE\DEXTROAMPHETAMINE [Suspect]
     Active Substance: AMPHETAMINE\DEXTROAMPHETAMINE
     Indication: Attention deficit hyperactivity disorder
     Dosage: OTHER QUANTITY : 1 CAPSULE(S);?FREQUENCY : DAILY;?
     Route: 048
     Dates: start: 20220309, end: 20220315
  2. CLARITIN [Concomitant]
     Active Substance: LORATADINE

REACTIONS (5)
  - Product substitution issue [None]
  - Headache [None]
  - Fatigue [None]
  - Abdominal pain upper [None]
  - Disturbance in attention [None]

NARRATIVE: CASE EVENT DATE: 20220309
